FAERS Safety Report 12307133 (Version 6)
Quarter: 2019Q3

REPORT INFORMATION
  Report Type: Spontaneous
  Country: US (occurrence: US)
  Receive Date: 20160426
  Receipt Date: 20190820
  Transmission Date: 20191004
  Serious: No
  Sender: FDA-Public Use
  Company Number: US-ALKERMES INC.-ALK-2016-000077

PATIENT
  Age: 43 Year
  Sex: Male
  Weight: 79.37 kg

DRUGS (21)
  1. VIVITROL [Suspect]
     Active Substance: NALTREXONE
     Dosage: 380 MG, QMO
     Route: 030
     Dates: start: 20150821, end: 20151204
  2. LAMICTAL [Concomitant]
     Active Substance: LAMOTRIGINE
     Indication: MOOD ALTERED
     Dosage: 200 MG, QD
     Route: 048
     Dates: start: 201510
  3. NALTREXONE [Concomitant]
     Active Substance: NALTREXONE
     Indication: LIBIDO INCREASED
  4. TENEX [Concomitant]
     Active Substance: GUANFACINE HYDROCHLORIDE
     Indication: PRODUCT USED FOR UNKNOWN INDICATION
  5. REYATAZ [Concomitant]
     Active Substance: ATAZANAVIR SULFATE
     Indication: PRODUCT USED FOR UNKNOWN INDICATION
     Dosage: 300 MG, QD
     Route: 048
     Dates: start: 20040821
  6. LITHIUM. [Concomitant]
     Active Substance: LITHIUM
     Indication: PRODUCT USED FOR UNKNOWN INDICATION
  7. VIVITROL [Suspect]
     Active Substance: NALTREXONE
     Indication: COMPULSIVE SEXUAL BEHAVIOUR
     Dosage: 380 MG, EVERY 3 WEEKS
     Route: 030
     Dates: start: 20160112
  8. ZYRTEC [Concomitant]
     Active Substance: CETIRIZINE HYDROCHLORIDE
     Indication: PRODUCT USED FOR UNKNOWN INDICATION
     Dosage: 10 MG, QD
     Route: 048
     Dates: start: 20100821
  9. NALTREXONE [Concomitant]
     Active Substance: NALTREXONE
     Indication: DRUG DEPENDENCE
     Dosage: 50 MG, QD
     Route: 048
     Dates: start: 20151222
  10. NORVIR [Concomitant]
     Active Substance: RITONAVIR
     Indication: HIV INFECTION
     Dosage: 100 MG, QD
     Route: 048
     Dates: start: 20040821
  11. FLONASE [Concomitant]
     Active Substance: FLUTICASONE PROPIONATE
     Indication: PRODUCT USED FOR UNKNOWN INDICATION
  12. MIDAMOR [Concomitant]
     Active Substance: AMILORIDE HYDROCHLORIDE
     Indication: PRODUCT USED FOR UNKNOWN INDICATION
  13. MULTIVITE [Concomitant]
     Active Substance: VITAMINS
     Indication: PRODUCT USED FOR UNKNOWN INDICATION
  14. VIVITROL [Suspect]
     Active Substance: NALTREXONE
     Indication: DRUG DEPENDENCE
     Dosage: 380 MG, EVERY 3 WEEKS
     Route: 030
  15. QNASL [Concomitant]
     Active Substance: BECLOMETHASONE DIPROPIONATE
     Indication: PRODUCT USED FOR UNKNOWN INDICATION
     Dosage: 80 UNK, QD
     Route: 045
     Dates: start: 20150821
  16. TRIUMEQ [Concomitant]
     Active Substance: ABACAVIR SULFATE\DOLUTEGRAVIR SODIUM\LAMIVUDINE
     Indication: PRODUCT USED FOR UNKNOWN INDICATION
  17. VALTREX [Concomitant]
     Active Substance: VALACYCLOVIR HYDROCHLORIDE
     Indication: PRODUCT USED FOR UNKNOWN INDICATION
  18. EPZICOM [Concomitant]
     Active Substance: ABACAVIR SULFATE\LAMIVUDINE
     Indication: HIV INFECTION
     Dosage: UNK MG, QD
     Route: 048
     Dates: start: 20130821
  19. RISPERIDONE. [Concomitant]
     Active Substance: RISPERIDONE
     Indication: PRODUCT USED FOR UNKNOWN INDICATION
     Dosage: 0.5 MG, QOD
     Route: 048
     Dates: start: 20140821
  20. TRAZODONE [Concomitant]
     Active Substance: TRAZODONE HYDROCHLORIDE
     Indication: INSOMNIA
     Dosage: 50 MG, QHS
     Route: 048
     Dates: start: 20130821
  21. SINGULAIR [Concomitant]
     Active Substance: MONTELUKAST SODIUM
     Indication: PRODUCT USED FOR UNKNOWN INDICATION
     Dosage: 10 MG, QD
     Route: 048
     Dates: start: 20100821

REACTIONS (21)
  - Therapeutic product effect decreased [Unknown]
  - Product administration error [Recovered/Resolved]
  - Thinking abnormal [Unknown]
  - Off label use [Not Recovered/Not Resolved]
  - Injection site pain [Unknown]
  - Feeling guilty [Not Recovered/Not Resolved]
  - Logorrhoea [Unknown]
  - Injection site reaction [Unknown]
  - Treatment noncompliance [Recovered/Resolved]
  - Substance abuse [Not Recovered/Not Resolved]
  - Disturbance in attention [Unknown]
  - Needle issue [Recovered/Resolved]
  - Product reconstitution quality issue [Recovered/Resolved]
  - Product quality issue [Recovered/Resolved]
  - Pain in extremity [Recovered/Resolved]
  - Sleep disorder [Unknown]
  - Libido increased [Not Recovered/Not Resolved]
  - Behaviour disorder [Not Recovered/Not Resolved]
  - Mania [Unknown]
  - Product dose omission [Recovered/Resolved]
  - Anger [Unknown]

NARRATIVE: CASE EVENT DATE: 20150112
